FAERS Safety Report 8104864-X (Version None)
Quarter: 2012Q1

REPORT INFORMATION
  Report Type: 
  Country: None (occurrence: None)
  Receive Date: 20120201
  Receipt Date: 20120130
  Transmission Date: 20120608
  Serious: Yes (Hospitalization, Congenital Anomaly)
  Sender: FDA-Public Use
  Company Number: US-GLAXOSMITHKLINE-A0679821A

PATIENT
  Sex: Female

DRUGS (1)
  1. PAXIL [Suspect]
     Indication: PRODUCT USED FOR UNKNOWN INDICATION
     Route: 064
     Dates: start: 20050901, end: 20051001

REACTIONS (7)
  - HYPOPLASTIC LEFT HEART SYNDROME [None]
  - SHONE COMPLEX [None]
  - ATRIAL SEPTAL DEFECT [None]
  - FOETAL EXPOSURE DURING PREGNANCY [None]
  - COARCTATION OF THE AORTA [None]
  - PATENT DUCTUS ARTERIOSUS [None]
  - CONGENITAL AORTIC VALVE INCOMPETENCE [None]
